FAERS Safety Report 7819534-2 (Version None)
Quarter: 2011Q4

REPORT INFORMATION
  Report Type: 
  Country: None (occurrence: None)
  Receive Date: 20111013
  Receipt Date: 20111005
  Transmission Date: 20120403
  Serious: Yes (Hospitalization)
  Sender: FDA-Public Use
  Company Number: 1000024469

PATIENT
  Sex: Male

DRUGS (2)
  1. SAVELLA [Suspect]
     Dates: end: 20110101
  2. COUMADIN [Suspect]
     Dates: end: 20110929

REACTIONS (1)
  - GASTROINTESTINAL HAEMORRHAGE [None]
